FAERS Safety Report 20622861 (Version 1)
Quarter: 2022Q1

REPORT INFORMATION
  Report Type: Spontaneous
  Country: EG (occurrence: EG)
  Receive Date: 20220322
  Receipt Date: 20220322
  Transmission Date: 20220423
  Serious: Yes (Death, Other)
  Sender: FDA-Public Use
  Company Number: EG-AMNEAL PHARMACEUTICALS-2022-AMRX-00723

PATIENT
  Age: 4 Year
  Sex: Male

DRUGS (1)
  1. TRANEXAMIC ACID [Suspect]
     Active Substance: TRANEXAMIC ACID
     Indication: Haemorrhage prophylaxis
     Dosage: UNK
     Route: 042

REACTIONS (2)
  - Generalised tonic-clonic seizure [Fatal]
  - Acute kidney injury [Fatal]
